FAERS Safety Report 21187733 (Version 1)
Quarter: 2022Q3

REPORT INFORMATION
  Report Type: Spontaneous
  Country: US (occurrence: None)
  Receive Date: 20220809
  Receipt Date: 20220809
  Transmission Date: 20221026
  Serious: No
  Sender: FDA-Public Use
  Company Number: 2022A270878

PATIENT
  Sex: Female
  Weight: 67.6 kg

DRUGS (3)
  1. BUDESONIDE\FORMOTEROL\GLYCOPYRRONIUM [Suspect]
     Active Substance: BUDESONIDE\FORMOTEROL\GLYCOPYRRONIUM
     Indication: Chronic obstructive pulmonary disease
     Dosage: 160/9/4.8 MCG 2 PUFFS TWICE A DAY
     Route: 055
  2. BUDESONIDE\FORMOTEROL\GLYCOPYRRONIUM [Suspect]
     Active Substance: BUDESONIDE\FORMOTEROL\GLYCOPYRRONIUM
     Indication: Emphysema
     Dosage: 160/9/4.8 MCG 2 PUFFS TWICE A DAY
     Route: 055
  3. BUDESONIDE\FORMOTEROL\GLYCOPYRRONIUM [Suspect]
     Active Substance: BUDESONIDE\FORMOTEROL\GLYCOPYRRONIUM
     Indication: Bronchitis
     Dosage: 160/9/4.8 MCG 2 PUFFS TWICE A DAY
     Route: 055

REACTIONS (7)
  - Device use issue [Unknown]
  - Dyspnoea [Unknown]
  - Chest discomfort [Unknown]
  - Cough [Unknown]
  - Product dose omission in error [Unknown]
  - Bacterial infection [Unknown]
  - Tuberculosis [Unknown]
